FAERS Safety Report 14026813 (Version 1)
Quarter: 2017Q3

REPORT INFORMATION
  Report Type: Spontaneous
  Country: US (occurrence: US)
  Receive Date: 20170929
  Receipt Date: 20170929
  Transmission Date: 20171128
  Serious: No
  Sender: FDA-Public Use
  Company Number: US-NOVEN PHARMACEUTICALS, INC.-US2016002136

PATIENT

DRUGS (1)
  1. COMBIPATCH [Suspect]
     Active Substance: ESTRADIOL\NORETHINDRONE ACETATE
     Indication: MENOPAUSAL SYMPTOMS
     Dosage: 50/250 MG, UNKNOWN
     Route: 062
     Dates: start: 2015

REACTIONS (6)
  - Product storage error [Unknown]
  - Product quality issue [Recovered/Resolved]
  - Drug administration error [Unknown]
  - Abdominal pain lower [Unknown]
  - Product adhesion issue [Recovered/Resolved]
  - Off label use [Unknown]

NARRATIVE: CASE EVENT DATE: 2015
